FAERS Safety Report 6857898-7 (Version None)
Quarter: 2010Q3

REPORT INFORMATION
  Report Type: 
  Country: None (occurrence: None)
  Receive Date: 20100714
  Receipt Date: 20100630
  Transmission Date: 20110219
  Serious: Yes (Other)
  Sender: FDA-Public Use
  Company Number: DSM-2010-00996

PATIENT
  Age: 42 Year
  Sex: Male

DRUGS (1)
  1. PLAUNAZIDE (HYDROCHLOROTHIAZIDE, OLMESARTAN MEDOXOMIL) (TABLET) (HYDRO [Suspect]
     Indication: HYPERTENSION
     Dosage: 12.5/ 20 MG, ORAL
     Route: 048
     Dates: start: 20100319, end: 20100329

REACTIONS (2)
  - ERYTHEMA [None]
  - RESPIRATORY FAILURE [None]
